FAERS Safety Report 23596606 (Version 2)
Quarter: 2024Q1

REPORT INFORMATION
  Report Type: Spontaneous
  Country: FR (occurrence: FR)
  Receive Date: 20240305
  Receipt Date: 20240317
  Transmission Date: 20240410
  Serious: Yes (Hospitalization, Other)
  Sender: FDA-Public Use
  Company Number: FR-TAKEDA-2024TUS019784

PATIENT
  Age: 39 Year
  Sex: Male
  Weight: 86 kg

DRUGS (6)
  1. BRINTELLIX [Suspect]
     Active Substance: VORTIOXETINE HYDROBROMIDE
     Indication: Product used for unknown indication
     Dosage: UNK
     Route: 065
  2. ESCITALOPRAM OXALATE [Suspect]
     Active Substance: ESCITALOPRAM OXALATE
     Indication: Tension headache
     Dosage: 10 MILLIGRAM
     Route: 048
     Dates: start: 20201023, end: 20210123
  3. ESCITALOPRAM OXALATE [Suspect]
     Active Substance: ESCITALOPRAM OXALATE
     Indication: Intracranial pressure increased
     Dosage: 10 MILLIGRAM
     Route: 048
     Dates: start: 2022
  4. ESCITALOPRAM OXALATE [Suspect]
     Active Substance: ESCITALOPRAM OXALATE
     Indication: Depressed mood
     Dosage: 5 MILLIGRAM
     Route: 048
  5. ESCITALOPRAM OXALATE [Suspect]
     Active Substance: ESCITALOPRAM OXALATE
     Indication: Asthenia
     Dosage: 10 MILLIGRAM
     Route: 048
  6. ESCITALOPRAM OXALATE [Suspect]
     Active Substance: ESCITALOPRAM OXALATE
     Indication: Fatigue
     Dosage: UNK
     Route: 048

REACTIONS (13)
  - Dehydration [Unknown]
  - Acute kidney injury [Unknown]
  - Hypochloraemia [Unknown]
  - Hypercalcaemia [Unknown]
  - Inappropriate antidiuretic hormone secretion [Recovered/Resolved]
  - Fatigue [Recovered/Resolved]
  - Decreased appetite [Recovered/Resolved]
  - Vertigo [Recovered/Resolved]
  - Dyspepsia [Recovered/Resolved]
  - Vomiting [Recovered/Resolved]
  - Nausea [Recovered/Resolved]
  - Hyponatraemia [Unknown]
  - Overdose [Unknown]

NARRATIVE: CASE EVENT DATE: 20201023
